FAERS Safety Report 17969819 (Version 1)
Quarter: 2020Q3

REPORT INFORMATION
  Report Type: Spontaneous
  Country: US (occurrence: US)
  Receive Date: 20200701
  Receipt Date: 20200701
  Transmission Date: 20201103
  Serious: Yes (Other)
  Sender: FDA-Public Use
  Company Number: US-PFIZER INC-2019060748

PATIENT
  Age: 33 Year
  Sex: Female

DRUGS (1)
  1. GENOTROPIN [Suspect]
     Active Substance: SOMATROPIN
     Dosage: 0.2 MG, DAILY
     Dates: start: 20180723

REACTIONS (5)
  - Dyslipidaemia [Unknown]
  - Vitamin D deficiency [Unknown]
  - Postpartum hypopituitarism [Unknown]
  - Hypopituitarism [Unknown]
  - Product dose omission issue [Unknown]
